FAERS Safety Report 21831142 (Version 1)
Quarter: 2023Q1

REPORT INFORMATION
  Report Type: Spontaneous
  Country: FR (occurrence: FR)
  Receive Date: 20230106
  Receipt Date: 20230106
  Transmission Date: 20230418
  Serious: Yes (Hospitalization)
  Sender: FDA-Public Use
  Company Number: None

PATIENT
  Age: 71 Year
  Sex: Male

DRUGS (3)
  1. BENDAMUSTINE HYDROCHLORIDE [Suspect]
     Active Substance: BENDAMUSTINE HYDROCHLORIDE
     Indication: Mantle cell lymphoma
     Dosage: BENDAMUSTINE (CHLORHYDRATE DE)
     Dates: start: 20221010, end: 20221010
  2. AUGMENTIN [Suspect]
     Active Substance: AMOXICILLIN\CLAVULANATE POTASSIUM
     Indication: Pyrexia
     Dates: start: 20221019, end: 20221020
  3. CIPROFLOXACIN [Suspect]
     Active Substance: CIPROFLOXACIN
     Indication: Pyrexia
     Dates: start: 20221019, end: 20221020

REACTIONS (3)
  - Dermatitis exfoliative generalised [Recovering/Resolving]
  - Toxic skin eruption [Recovering/Resolving]
  - Rash maculo-papular [Recovering/Resolving]

NARRATIVE: CASE EVENT DATE: 20221021
